FAERS Safety Report 6316644-6 (Version None)
Quarter: 2009Q3

REPORT INFORMATION
  Report Type: 
  Country: None (occurrence: None)
  Receive Date: 20090820
  Receipt Date: 20090817
  Transmission Date: 20100115
  Serious: Yes (Hospitalization)
  Sender: FDA-Public Use
  Company Number: FR-PFIZER INC-2009240368

PATIENT
  Age: 46 Year

DRUGS (1)
  1. SOLU-MEDROL [Suspect]
     Indication: ALOPECIA AREATA
     Dosage: 3 DAYS PER MONTH
     Route: 040
     Dates: start: 20090112, end: 20090211

REACTIONS (1)
  - CYTOLYTIC HEPATITIS [None]
